FAERS Safety Report 10141746 (Version 1)
Quarter: 2014Q2

REPORT INFORMATION
  Report Type: Report from Study
  Country: CA (occurrence: CA)
  Receive Date: 20140429
  Receipt Date: 20140429
  Transmission Date: 20141212
  Serious: Yes (Other)
  Sender: FDA-Public Use
  Company Number: CA-BRISTOL-MYERS SQUIBB COMPANY-20656153

PATIENT
  Age: 51 Year
  Sex: Female

DRUGS (9)
  1. ORENCIA [Suspect]
     Indication: RHEUMATOID ARTHRITIS
     Dosage: 1DF: 750 UNITS NOS
     Dates: start: 20091120
  2. ALTACE [Concomitant]
  3. CYMBALTA [Concomitant]
  4. ARTHROTEC [Concomitant]
  5. AMITRIPTYLINE [Concomitant]
  6. IBUPROFEN [Concomitant]
  7. RANITIDINE [Concomitant]
  8. PREDNISONE [Concomitant]
  9. ZOPICLONE [Concomitant]

REACTIONS (1)
  - Uterine disorder [Not Recovered/Not Resolved]
